FAERS Safety Report 5598792-1 (Version None)
Quarter: 2008Q1

REPORT INFORMATION
  Report Type: 
  Country: None (occurrence: None)
  Receive Date: 20080122
  Receipt Date: 20080116
  Transmission Date: 20080703
  Serious: Yes (Other)
  Sender: FDA-Public Use
  Company Number: JP-RANBAXY-2008RR-12644

PATIENT

DRUGS (1)
  1. FUROSEMIDE TABLETS BP 40MG [Suspect]

REACTIONS (1)
  - DERMATITIS EXFOLIATIVE [None]
